FAERS Safety Report 7706977-0 (Version None)
Quarter: 2011Q3

REPORT INFORMATION
  Report Type: 
  Country: None (occurrence: None)
  Receive Date: 20110824
  Receipt Date: 20110822
  Transmission Date: 20111222
  Serious: No
  Sender: FDA-Public Use
  Company Number: US-PFIZER INC-2011194824

PATIENT
  Sex: Male

DRUGS (1)
  1. ZOLOFT [Suspect]
     Indication: ANXIETY
     Dosage: 100 MG DAILY
     Route: 048
     Dates: start: 20101101, end: 20110801

REACTIONS (6)
  - WEIGHT INCREASED [None]
  - SEXUAL DYSFUNCTION [None]
  - FATIGUE [None]
  - PARAESTHESIA [None]
  - DIZZINESS [None]
  - IRRITABILITY [None]
